FAERS Safety Report 6371546-4 (Version None)
Quarter: 2009Q3

REPORT INFORMATION
  Report Type: 
  Country: None (occurrence: None)
  Receive Date: 20090923
  Receipt Date: 20070907
  Transmission Date: 20100115
  Serious: No
  Sender: FDA-Public Use
  Company Number: US-ASTRAZENECA-2007UW24619

PATIENT
  Age: 21209 Day
  Sex: Female
  Weight: 115.7 kg

DRUGS (22)
  1. SEROQUEL [Suspect]
     Indication: ARTHRITIS
     Route: 048
     Dates: start: 20021001
  2. MAVIK [Concomitant]
  3. METFORMIN HCL [Concomitant]
  4. LIPITOR [Concomitant]
  5. DYAZIDE [Concomitant]
  6. GLUOVANCE [Concomitant]
  7. HUMULIN R [Concomitant]
  8. K DUR [Concomitant]
  9. CORTISONE [Concomitant]
  10. FENTANYL [Concomitant]
  11. NOVOLIN R [Concomitant]
  12. TYLENOL (CAPLET) [Concomitant]
  13. IBUPROFEN [Concomitant]
  14. LISINOPRIL [Concomitant]
  15. BETAMETHASONE [Concomitant]
  16. CLINDAMYCIN [Concomitant]
  17. THIAZIDE [Concomitant]
  18. CIPROFLAXACIN [Concomitant]
  19. TETANUS DIPHTHERIA TOXOID [Concomitant]
  20. BACITRACIN [Concomitant]
  21. RIFAMPICIN [Concomitant]
  22. CEPHALEXIN [Concomitant]

REACTIONS (4)
  - DIABETES MELLITUS [None]
  - HYPERGLYCAEMIA [None]
  - TYPE 2 DIABETES MELLITUS [None]
  - VISION BLURRED [None]
